FAERS Safety Report 4349636-7 (Version None)
Quarter: 2004Q2

REPORT INFORMATION
  Report Type: 
  Country: None (occurrence: None)
  Receive Date: 20040427
  Receipt Date: 20031107
  Transmission Date: 20050107
  Serious: No
  Sender: FDA-Public Use
  Company Number: 000691

PATIENT
  Age: 74 Year
  Sex: Male

DRUGS (4)
  1. ZEVALIN [Suspect]
     Indication: NON-HODGKIN'S LYMPHOMA
     Dosage: SINGLE, RITUXAN DOSE 1, INTRAVENOUS
     Route: 042
     Dates: start: 20031001, end: 20031001
  2. ZEVALIN [Suspect]
     Dosage: SINGLE, IN-[111] ZEVALIN, INTRAVENOUS
     Route: 042
     Dates: start: 20031001, end: 20031001
  3. ZEVALIN [Suspect]
     Dosage: SINGLE, RITUXAN DOSE 2, INTRAVENOUS
     Route: 042
     Dates: start: 20031030, end: 20031030
  4. ZEVALIN [Suspect]
     Dosage: SINGLE,Y[90] ZEVALIN, INTRAVENOUS
     Route: 042
     Dates: start: 20031030, end: 20031030

REACTIONS (4)
  - DISEASE PROGRESSION [None]
  - FATIGUE [None]
  - INSOMNIA [None]
  - RENAL IMPAIRMENT [None]
